FAERS Safety Report 22305816 (Version 2)
Quarter: 2023Q2

REPORT INFORMATION
  Report Type: Spontaneous
  Country: US (occurrence: US)
  Receive Date: 20230511
  Receipt Date: 20230519
  Transmission Date: 20230722
  Serious: Yes (Other)
  Sender: FDA-Public Use
  Company Number: US-VIIV HEALTHCARE LIMITED-US2023063859

PATIENT
  Sex: Male

DRUGS (3)
  1. RILPIVIRINE [Suspect]
     Active Substance: RILPIVIRINE
     Indication: HIV infection
     Dosage: UNK
     Route: 065
     Dates: start: 20220505
  2. CABOTEGRAVIR [Suspect]
     Active Substance: CABOTEGRAVIR
     Indication: HIV infection
     Dosage: UNK
     Route: 065
     Dates: start: 20220505
  3. GLUTATHIONE [Suspect]
     Active Substance: GLUTATHIONE
     Indication: Product used for unknown indication
     Route: 065

REACTIONS (15)
  - Cellulitis [Recovering/Resolving]
  - Swelling [Not Recovered/Not Resolved]
  - Pain [Unknown]
  - Injection site discomfort [Unknown]
  - Road traffic accident [Unknown]
  - Fall [Unknown]
  - Chills [Unknown]
  - Hyperhidrosis [Unknown]
  - Body temperature increased [Unknown]
  - Adverse drug reaction [Unknown]
  - Abscess [Unknown]
  - Infection [Unknown]
  - Condition aggravated [Not Recovered/Not Resolved]
  - Injection site induration [Unknown]
  - Injection site fibrosis [Unknown]
